FAERS Safety Report 14949129 (Version 2)
Quarter: 2021Q4

REPORT INFORMATION
  Report Type: Spontaneous
  Country: HU (occurrence: HU)
  Receive Date: 20180529
  Receipt Date: 20211025
  Transmission Date: 20220303
  Serious: Yes (Other)
  Sender: FDA-Public Use
  Company Number: HU-NOVPHSZ-PHHY2017HU162717

PATIENT
  Age: 42 Year
  Sex: Female

DRUGS (7)
  1. IBUPROFEN [Suspect]
     Active Substance: IBUPROFEN
     Indication: Ankylosing spondylitis
     Dosage: UNK (START: 2016)
     Route: 065
  2. IBUPROFEN [Suspect]
     Active Substance: IBUPROFEN
     Indication: Arthropathy
     Dosage: UNK
  3. AZATHIOPRINE [Suspect]
     Active Substance: AZATHIOPRINE
     Indication: Eosinophilic granulomatosis with polyangiitis
     Dosage: 100 MILLIGRAM, QD
     Route: 048
  4. AZATHIOPRINE [Suspect]
     Active Substance: AZATHIOPRINE
     Indication: Colitis ulcerative
     Dosage: 50 MILLIGRAM, QD
     Route: 065
     Dates: start: 1999
  5. NIMESULIDE [Suspect]
     Active Substance: NIMESULIDE
     Indication: Ankylosing spondylitis
     Dosage: UNK (START 2016)
     Route: 065
  6. NIMESULIDE [Suspect]
     Active Substance: NIMESULIDE
     Indication: Arthropathy
     Dosage: UNK
  7. SULFASALAZINE [Suspect]
     Active Substance: SULFASALAZINE
     Indication: Colitis ulcerative
     Dosage: 1000 MILLIGRAM, BID (500 MG, BID)
     Route: 065
     Dates: start: 1999

REACTIONS (7)
  - Colitis ulcerative [Recovered/Resolved]
  - Ankylosing spondylitis [Recovering/Resolving]
  - Sacroiliitis [Recovered/Resolved]
  - Inflammatory pain [Recovered/Resolved]
  - Back pain [Recovered/Resolved]
  - Adverse reaction [Recovered/Resolved]
  - Product use in unapproved indication [Unknown]

NARRATIVE: CASE EVENT DATE: 20150101
